FAERS Safety Report 5221608-X (Version None)
Quarter: 2007Q1

REPORT INFORMATION
  Report Type: 
  Country: None (occurrence: None)
  Receive Date: 20070129
  Receipt Date: 20070119
  Transmission Date: 20070707
  Serious: Yes (Life-Threatening, Hospitalization)
  Sender: FDA-Public Use
  Company Number: JP-ELI_LILLY_AND_COMPANY-JP200612002571

PATIENT
  Age: 65 Year
  Sex: Male

DRUGS (8)
  1. ZYPREXA [Suspect]
     Indication: SCHIZOPHRENIA
     Dosage: 5 MG, UNK
     Route: 048
     Dates: start: 20061106
  2. HALOPERIDOL [Concomitant]
     Indication: SCHIZOPHRENIA
     Dosage: 3 MG, DAILY (1/D)
     Route: 048
     Dates: start: 20040827, end: 20061108
  3. PZC [Concomitant]
     Indication: SCHIZOPHRENIA
     Dosage: 8 MG, DAILY (1/D)
     Route: 048
     Dates: start: 20010709, end: 20061108
  4. NITRAZEPAM [Concomitant]
     Indication: INSOMNIA
     Dosage: 5 MG, DAILY (1/D)
     Route: 048
     Dates: start: 20051121, end: 20061108
  5. PROMETHAZINE HCL [Concomitant]
     Indication: PARKINSONISM
     Dosage: 25 MG, DAILY (1/D)
     Route: 048
     Dates: start: 19990823, end: 20061108
  6. AMITRIPTYLINE HCL [Concomitant]
     Indication: DEPRESSION
     Dosage: 75 MG, DAILY (1/D)
     Route: 048
     Dates: start: 19990823, end: 20061108
  7. LEXOTAN [Concomitant]
     Indication: DEPRESSION
     Dosage: 15 MG, DAILY (1/D)
     Route: 048
     Dates: start: 19990823, end: 20061108
  8. LOXOPROFEN SODIUM [Concomitant]
     Indication: HEADACHE
     Dosage: 60 MG, DAILY (1/D)
     Route: 048
     Dates: start: 20040927, end: 20061108

REACTIONS (2)
  - INTERSTITIAL LUNG DISEASE [None]
  - RESPIRATORY FAILURE [None]
